FAERS Safety Report 4752333-7 (Version None)
Quarter: 2005Q3

REPORT INFORMATION
  Report Type: 
  Country: None (occurrence: None)
  Receive Date: 20050825
  Receipt Date: 20050629
  Transmission Date: 20060218
  Serious: Yes (Other)
  Sender: FDA-Public Use
  Company Number: NL-GLAXOSMITHKLINE-B0387069A

PATIENT

DRUGS (1)
  1. SUMATRIPTAN SUCCINATE [Suspect]
     Indication: DRUG USE FOR UNKNOWN INDICATION
     Dosage: 6MG UNKNOWN
     Route: 065

REACTIONS (2)
  - DEVICE MALFUNCTION [None]
  - PHARMACEUTICAL PRODUCT COMPLAINT [None]
